FAERS Safety Report 18626818 (Version 1)
Quarter: 2020Q4

REPORT INFORMATION
  Report Type: Spontaneous
  Country: FR (occurrence: FR)
  Receive Date: 20201217
  Receipt Date: 20201217
  Transmission Date: 20210114
  Serious: Yes (Hospitalization)
  Sender: FDA-Public Use
  Company Number: NVSC2020FR333069

PATIENT
  Age: 66 Year
  Sex: Male

DRUGS (2)
  1. KARDEGIC [Suspect]
     Active Substance: ASPIRIN DL-LYSINE
     Indication: CARDIOMYOPATHY
     Dosage: 160 MG,QD
     Route: 048
  2. GLIVEC [Suspect]
     Active Substance: IMATINIB MESYLATE
     Indication: CHRONIC MYELOID LEUKAEMIA
     Dosage: 400 MG,QD
     Route: 048
     Dates: start: 201911

REACTIONS (1)
  - Renal haematoma [Not Recovered/Not Resolved]

NARRATIVE: CASE EVENT DATE: 20201019
